FAERS Safety Report 5596013-7 (Version None)
Quarter: 2008Q1

REPORT INFORMATION
  Report Type: 
  Country: None (occurrence: None)
  Receive Date: 20080118
  Receipt Date: 20071001
  Transmission Date: 20080703
  Serious: Yes (Hospitalization, Other)
  Sender: FDA-Public Use
  Company Number: US-ASTRAZENECA-2007UW10984

PATIENT
  Age: 18906 Day
  Sex: Female
  Weight: 79.5 kg

DRUGS (32)
  1. SEROQUEL [Suspect]
     Indication: DEPRESSION
     Dosage: 100-200 MG
     Route: 048
     Dates: start: 20030731, end: 20050304
  2. RISPERDAL [Concomitant]
  3. ZYPREXA [Concomitant]
     Dates: start: 19960101
  4. DIVALPROEX SODIUM [Concomitant]
  5. PAROXETINE [Concomitant]
  6. TEMAZEPAM [Concomitant]
  7. CLONAZEPAM [Concomitant]
  8. AMITRIPTYLINE HCL [Concomitant]
  9. FLURAZEPAM [Concomitant]
  10. TRAZODONE HCL [Concomitant]
  11. DEPAKOTE [Concomitant]
  12. LITHIUM CARBONATE [Concomitant]
  13. WELLBUTRIN SR [Concomitant]
  14. ACETIC ACID [Concomitant]
  15. ALBUTEROL/IPRATROP [Concomitant]
  16. AMITRIPTYLINE HCL [Concomitant]
  17. AZITHROMYCIN [Concomitant]
  18. CLONIDINE HCL [Concomitant]
  19. CODEINE/GUAFENESIN [Concomitant]
  20. CROMOLYN SODIUM [Concomitant]
  21. DEXAMETH/DIPHENHYD/LIDOCAINE/MYLANTA [Concomitant]
  22. DILTIAZEM HCL [Concomitant]
  23. FLUCONAZOLE [Concomitant]
  24. FLUNISOLIDE [Concomitant]
  25. FORMOTEROL FUMARATE [Concomitant]
  26. IPRATROPIUM BROMIDE [Concomitant]
  27. LORATADINE [Concomitant]
  28. MONTELUKAST NA [Concomitant]
  29. OMEPRAZOLE [Concomitant]
  30. PREDNISONE [Concomitant]
  31. TRAMADOL HCL [Concomitant]
  32. TRAZODONE HCL [Concomitant]

REACTIONS (14)
  - ABDOMINAL PAIN [None]
  - CHRONIC OBSTRUCTIVE PULMONARY DISEASE [None]
  - CONSTIPATION [None]
  - CORONARY ARTERY DISEASE [None]
  - DIABETES MELLITUS [None]
  - DIARRHOEA [None]
  - FLUSHING [None]
  - INSOMNIA [None]
  - METABOLIC SYNDROME [None]
  - NEURALGIA [None]
  - OBESITY [None]
  - PNEUMONIA [None]
  - STRESS URINARY INCONTINENCE [None]
  - TACHYCARDIA PAROXYSMAL [None]
